FAERS Safety Report 13214798 (Version 1)
Quarter: 2017Q1

REPORT INFORMATION
  Report Type: Spontaneous
  Country: JP (occurrence: JP)
  Receive Date: 20170210
  Receipt Date: 20170210
  Transmission Date: 20170428
  Serious: Yes (Hospitalization)
  Sender: FDA-Public Use
  Company Number: JP-FRESENIUS KABI-FK201701141

PATIENT
  Age: 43 Year
  Sex: Female

DRUGS (1)
  1. SUMATRIPTAN (MANUFACTURER UNKNOWN) (SUMATRIPTAN SUCCINATE) (SUMATRIPTAN SUCCINATE) [Suspect]
     Active Substance: SUMATRIPTAN
     Indication: HEADACHE
     Route: 048

REACTIONS (4)
  - Subarachnoid haemorrhage [Recovered/Resolved]
  - Posterior reversible encephalopathy syndrome [Recovered/Resolved]
  - Contraindicated product administered [Recovered/Resolved]
  - Reversible cerebral vasoconstriction syndrome [Recovered/Resolved]
